FAERS Safety Report 8920787 (Version 2)
Quarter: 2014Q3

REPORT INFORMATION
  Report Type: Spontaneous
  Country: US (occurrence: US)
  Receive Date: 20121121
  Receipt Date: 20140801
  Transmission Date: 20150326
  Serious: Yes (Hospitalization)
  Sender: FDA-Public Use
  Company Number: US-GLAXOSMITHKLINE-A0910406A

PATIENT
  Sex: Male

DRUGS (1)
  1. AVANDIA [Suspect]
     Active Substance: ROSIGLITAZONE MALEATE
     Indication: DIABETES MELLITUS
     Dosage: 8MG PER DAY
     Route: 048
     Dates: start: 20070406, end: 20070507

REACTIONS (5)
  - Cerebrovascular accident [Not Recovered/Not Resolved]
  - Atrial fibrillation [Unknown]
  - Cardiac assistance device user [Unknown]
  - Cardiac failure congestive [Unknown]
  - Arrhythmia [Unknown]
